FAERS Safety Report 16032069 (Version 2)
Quarter: 2019Q2

REPORT INFORMATION
  Report Type: Spontaneous
  Country: JP (occurrence: JP)
  Receive Date: 20190304
  Receipt Date: 20190417
  Transmission Date: 20190711
  Serious: Yes (Hospitalization, Other)
  Sender: FDA-Public Use
  Company Number: JP-009507513-1901JPN003011J

PATIENT
  Age: 75 Year
  Sex: Female
  Weight: 30 kg

DRUGS (5)
  1. BONOTEO [Suspect]
     Active Substance: MINODRONIC ACID
     Indication: SPINAL COMPRESSION FRACTURE
     Dosage: 50 MILLIGRAM
     Route: 048
     Dates: start: 2015, end: 2016
  2. SPIRONOLACTONE. [Concomitant]
     Active Substance: SPIRONOLACTONE
     Dosage: 25 MILLIGRAM
     Route: 048
  3. ELDECALCITOL [Concomitant]
     Active Substance: ELDECALCITOL
     Dosage: .75 MICROGRAM
     Route: 048
  4. FOSAMAC TABLETS 35MG [Suspect]
     Active Substance: ALENDRONATE SODIUM
     Indication: SPINAL COMPRESSION FRACTURE
     Dosage: 35 MILLIGRAM, QW
     Route: 048
     Dates: start: 2013, end: 2015
  5. BONVIVA [Suspect]
     Active Substance: IBANDRONATE SODIUM
     Indication: SPINAL COMPRESSION FRACTURE
     Dosage: 100 MILLIGRAM
     Route: 048
     Dates: start: 2016, end: 2018

REACTIONS (15)
  - Movement disorder [Unknown]
  - Erythema [Unknown]
  - Sepsis [Unknown]
  - Disseminated intravascular coagulation [Unknown]
  - Dental caries [Unknown]
  - Hypochromic anaemia [Unknown]
  - Gait disturbance [Unknown]
  - Chronic sinusitis [Unknown]
  - Depressed level of consciousness [Recovering/Resolving]
  - Swelling of eyelid [Unknown]
  - Brain abscess [Unknown]
  - Osteonecrosis of jaw [Recovered/Resolved]
  - Pyrexia [Unknown]
  - Periorbital abscess [Unknown]
  - Eating disorder [Unknown]

NARRATIVE: CASE EVENT DATE: 201811
